FAERS Safety Report 7768704-0 (Version None)
Quarter: 2011Q3

REPORT INFORMATION
  Report Type: 
  Country: None (occurrence: None)
  Receive Date: 20110922
  Receipt Date: 20110720
  Transmission Date: 20111222
  Serious: Yes (Hospitalization)
  Sender: FDA-Public Use
  Company Number: US-ASTRAZENECA-2007UW27334

PATIENT
  Age: 35 Year
  Sex: Female
  Weight: 79.8 kg

DRUGS (9)
  1. SEROQUEL [Suspect]
     Dosage: 25-200 MG
     Route: 048
     Dates: start: 20041215, end: 20051107
  2. IBUPROFEN [Concomitant]
     Dosage: 600-800 MG
     Dates: start: 20050201
  3. LANTUS [Concomitant]
     Dosage: 35 UNITS AT BEDTIME
     Dates: start: 20051107
  4. LEXAPRO [Concomitant]
     Route: 048
     Dates: start: 20040814
  5. TRAZODONE HYDROCHLORIDE [Concomitant]
     Dates: start: 20040814
  6. NOVOLOG [Concomitant]
     Dosage: 15-45 UNITS
     Route: 058
     Dates: start: 20051107
  7. TYLENOL-500 [Concomitant]
     Dates: start: 20051107
  8. SEROQUEL [Suspect]
     Indication: DEPRESSION
     Dosage: VARIOUS DOSES INCLUDING BUT NOT LIMITED TO 25 MG, 100 MG, AND 200 MG
     Dates: start: 20041201, end: 20051001
  9. KLONOPIN [Concomitant]
     Indication: ANXIETY
     Dates: start: 20051107

REACTIONS (5)
  - DIABETIC KETOACIDOSIS [None]
  - TYPE 2 DIABETES MELLITUS [None]
  - BLOOD GLUCOSE INCREASED [None]
  - FURUNCLE [None]
  - GESTATIONAL DIABETES [None]
